FAERS Safety Report 16736793 (Version 2)
Quarter: 2019Q3

REPORT INFORMATION
  Report Type: Spontaneous
  Country: ES (occurrence: ES)
  Receive Date: 20190823
  Receipt Date: 20190829
  Transmission Date: 20191005
  Serious: Yes (Other)
  Sender: FDA-Public Use
  Company Number: ES-ALLERGAN-1934659US

PATIENT
  Sex: Female

DRUGS (1)
  1. ATROPINE SULFATE 1.0% SOL (0015B) [Suspect]
     Active Substance: ATROPINE SULFATE
     Indication: MYOPIA
     Dosage: 2 GTT
     Route: 047

REACTIONS (2)
  - Supraventricular extrasystoles [Unknown]
  - Off label use [Unknown]
